FAERS Safety Report 5860965-8 (Version None)
Quarter: 2008Q3

REPORT INFORMATION
  Report Type: 
  Country: None (occurrence: None)
  Receive Date: 20080827
  Receipt Date: 20080114
  Transmission Date: 20090109
  Serious: No
  Sender: FDA-Public Use
  Company Number: US-ABBOTT-08P-163-0433396-00

PATIENT
  Sex: Male
  Weight: 85.352 kg

DRUGS (8)
  1. NIASPAN [Suspect]
     Indication: HIGH DENSITY LIPOPROTEIN DECREASED
     Route: 048
     Dates: start: 20070101
  2. NIASPAN [Suspect]
     Dates: start: 20070901
  3. WARFARIN SODIUM [Concomitant]
     Indication: MYOCARDIAL INFARCTION
  4. FEXOFENADINE [Concomitant]
     Indication: HYPERSENSITIVITY
  5. ROSUVASTATIN [Concomitant]
     Indication: BLOOD CHOLESTEROL INCREASED
  6. QUINAPRIL HCL [Concomitant]
     Indication: CARDIAC FAILURE
  7. ACETYLSALICYLIC ACID SRT [Concomitant]
     Indication: PROPHYLAXIS
     Route: 048
  8. CARDEVAL [Concomitant]
     Indication: MYOCARDIAL INFARCTION

REACTIONS (1)
  - FLUSHING [None]
